FAERS Safety Report 8562496-3 (Version None)
Quarter: 2012Q3

REPORT INFORMATION
  Report Type: 
  Country: None (occurrence: None)
  Receive Date: 20120802
  Receipt Date: 20120713
  Transmission Date: 20120928
  Serious: No
  Sender: FDA-Public Use
  Company Number: US-AMGEN-USASP2011061545

PATIENT
  Age: 50 Year
  Sex: Male

DRUGS (2)
  1. CLOBEX                             /00012002/ [Concomitant]
     Indication: PSORIASIS
     Dosage: UNK UNK, PRN
     Route: 061
  2. ENBREL [Suspect]
     Indication: PSORIASIS
     Dosage: 50 MG, 2 TIMES/WK
     Route: 058
     Dates: start: 20110927

REACTIONS (2)
  - NASOPHARYNGITIS [None]
  - COUGH [None]
